FAERS Safety Report 7331765-7 (Version None)
Quarter: 2011Q1

REPORT INFORMATION
  Report Type: 
  Country: None (occurrence: None)
  Receive Date: 20110304
  Receipt Date: 20110222
  Transmission Date: 20110831
  Serious: Yes (Hospitalization)
  Sender: FDA-Public Use
  Company Number: GB-JNJFOC-20110202425

PATIENT
  Age: 21 Year
  Sex: Female

DRUGS (7)
  1. TRAMADOL HYDROCHLORIDE [Suspect]
     Route: 065
  2. CYCLIZINE [Concomitant]
  3. TRAMADOL HYDROCHLORIDE [Suspect]
     Indication: ABDOMINAL PAIN
     Route: 065
  4. METOCLOPRAMIDE [Concomitant]
  5. OMEPRAZOLE [Concomitant]
  6. SUMATRIPTAN AND NAPROXEN SODIUM [Concomitant]
  7. IBUPROFEN [Concomitant]

REACTIONS (2)
  - HYPERPROLACTINAEMIA [None]
  - SECONDARY ADRENOCORTICAL INSUFFICIENCY [None]
